FAERS Safety Report 6384715-4 (Version None)
Quarter: 2009Q4

REPORT INFORMATION
  Report Type: 
  Country: None (occurrence: None)
  Receive Date: 20091001
  Receipt Date: 20090921
  Transmission Date: 20100525
  Serious: Yes (Hospitalization, Other)
  Sender: FDA-Public Use
  Company Number: US-NOVOPROD-291898

PATIENT
  Age: 70 Year
  Sex: Male
  Weight: 95.238 kg

DRUGS (8)
  1. NOVOLOG [Suspect]
     Indication: INSULIN-REQUIRING TYPE 2 DIABETES MELLITUS
     Dosage: SLIDING SCALE WITH MEALS
     Route: 058
     Dates: start: 20090101
  2. LEVEMIR [Suspect]
     Indication: INSULIN-REQUIRING TYPE 2 DIABETES MELLITUS
     Dosage: 50-60 UNITS DAILY DEPENDING ON SUGAR READINGS
     Route: 058
     Dates: start: 20090101
  3. LEVEMIR [Suspect]
     Dosage: 110 IU, QD
     Route: 058
  4. LEVEMIR [Suspect]
     Dosage: 75 IU, QD
     Route: 058
  5. LEVEMIR [Suspect]
     Dosage: 60 IU, QD
  6. LEVEMIR [Suspect]
     Dosage: 50 IU, QD
  7. GLIPIZIDE [Concomitant]
     Indication: INSULIN-REQUIRING TYPE 2 DIABETES MELLITUS
     Route: 048
  8. JANUVIA [Concomitant]
     Indication: INSULIN-REQUIRING TYPE 2 DIABETES MELLITUS
     Route: 048

REACTIONS (5)
  - ANURIA [None]
  - BLOOD GLUCOSE FLUCTUATION [None]
  - HAEMOGLOBIN DECREASED [None]
  - PROSTATIC HAEMORRHAGE [None]
  - URINARY BLADDER HAEMORRHAGE [None]
